FAERS Safety Report 14639031 (Version 2)
Quarter: 2018Q4

REPORT INFORMATION
  Report Type: Spontaneous
  Country: FR (occurrence: FR)
  Receive Date: 20180315
  Receipt Date: 20181023
  Transmission Date: 20190204
  Serious: Yes (Other)
  Sender: FDA-Public Use
  Company Number: FR-MERCK KGAA-2043762

PATIENT
  Sex: Female

DRUGS (1)
  1. EUTHYROX [Suspect]
     Active Substance: LEVOTHYROXINE SODIUM
     Indication: PRODUCT USED FOR UNKNOWN INDICATION

REACTIONS (15)
  - Balance disorder [None]
  - Dizziness [None]
  - Fatigue [None]
  - Disturbance in attention [None]
  - Memory impairment [None]
  - Palpitations [None]
  - Stress [None]
  - Depressed mood [None]
  - Psychomotor hyperactivity [None]
  - Irritability [None]
  - Impatience [None]
  - Gait disturbance [None]
  - Muscle spasms [None]
  - Malaise [None]
  - Hypokinesia [None]
